FAERS Safety Report 23446117 (Version 2)
Quarter: 2024Q1

REPORT INFORMATION
  Report Type: Other
  Country: PK (occurrence: None)
  Receive Date: 20240126
  Receipt Date: 20240131
  Transmission Date: 20240410
  Serious: Yes (Death)
  Sender: FDA-Public Use
  Company Number: PK-ROCHE-3498908

PATIENT
  Age: 75 Year
  Sex: Female

DRUGS (1)
  1. AVASTIN [Suspect]
     Active Substance: BEVACIZUMAB
     Indication: Ovarian cancer
     Route: 042
     Dates: start: 20231114

REACTIONS (1)
  - Abdominal abscess [Fatal]

NARRATIVE: CASE EVENT DATE: 20231224
